FAERS Safety Report 9267128 (Version 2)
Quarter: 2014Q1

REPORT INFORMATION
  Report Type: Spontaneous
  Country: US (occurrence: US)
  Receive Date: 20130502
  Receipt Date: 20140325
  Transmission Date: 20141002
  Serious: No
  Sender: FDA-Public Use
  Company Number: US-009507513-1304USA017451

PATIENT
  Sex: Male
  Weight: 70.75 kg

DRUGS (1)
  1. PROPECIA [Suspect]
     Indication: ANDROGENETIC ALOPECIA
     Dosage: 1 MG, QD
     Route: 048
     Dates: start: 200612, end: 200707

REACTIONS (14)
  - Organic erectile dysfunction [Not Recovered/Not Resolved]
  - Sexual dysfunction [Not Recovered/Not Resolved]
  - Musculoskeletal discomfort [Recovering/Resolving]
  - Organic erectile dysfunction [Not Recovered/Not Resolved]
  - Skin disorder [Not Recovered/Not Resolved]
  - Tinea versicolour [Recovered/Resolved]
  - Acne [Unknown]
  - Libido decreased [Not Recovered/Not Resolved]
  - Sexual dysfunction [Not Recovered/Not Resolved]
  - Fatigue [Unknown]
  - Paraesthesia [Unknown]
  - Psychogenic erectile dysfunction [Not Recovered/Not Resolved]
  - Anal fissure [Unknown]
  - Anxiety [Unknown]
